FAERS Safety Report 9855913 (Version 1)
Quarter: 2013Q4

REPORT INFORMATION
  Report Type: Spontaneous
  Country: US (occurrence: None)
  Receive Date: 20131226
  Receipt Date: 20131226
  Transmission Date: 20140711
  Serious: No
  Sender: FDA-Public Use
  Company Number: PHEH2013US012030

PATIENT
  Age: 48 Year
  Sex: Female

DRUGS (1)
  1. GILENYA (FINGOLIMOD) CAPSULE [Suspect]
     Route: 048

REACTIONS (3)
  - Pharyngeal oedema [None]
  - Throat irritation [None]
  - Dyspepsia [None]
